FAERS Safety Report 7322149-6 (Version None)
Quarter: 2011Q1

REPORT INFORMATION
  Report Type: 
  Country: None (occurrence: None)
  Receive Date: 20110228
  Receipt Date: 20110217
  Transmission Date: 20110831
  Serious: Yes (Death)
  Sender: FDA-Public Use
  Company Number: TW-BAXTER-2011BH001473

PATIENT

DRUGS (6)
  1. DIANEAL [Suspect]
     Indication: PERITONEAL DIALYSIS
     Route: 033
     Dates: start: 20090501, end: 20110101
  2. EXTRANEAL [Suspect]
     Indication: PERITONEAL DIALYSIS
     Route: 033
     Dates: start: 20090501, end: 20110101
  3. EXTRANEAL [Suspect]
     Route: 033
     Dates: start: 20090501, end: 20110101
  4. DIANEAL [Suspect]
     Route: 033
     Dates: start: 20090501, end: 20110101
  5. DIANEAL [Suspect]
     Indication: PERITONEAL DIALYSIS
     Route: 033
     Dates: start: 20090501, end: 20110101
  6. DIANEAL [Suspect]
     Route: 033
     Dates: start: 20090501, end: 20110101

REACTIONS (1)
  - CARDIOVASCULAR DISORDER [None]
